FAERS Safety Report 15100960 (Version 1)
Quarter: 2018Q3

REPORT INFORMATION
  Report Type: Spontaneous
  Country: US (occurrence: US)
  Receive Date: 20180703
  Receipt Date: 20180703
  Transmission Date: 20181010
  Serious: No
  Sender: FDA-Public Use
  Company Number: US-PFIZER INC-2018267018

PATIENT
  Age: 52 Year
  Sex: Male

DRUGS (1)
  1. DOXYCYCLINE HYCLATE. [Suspect]
     Active Substance: DOXYCYCLINE HYCLATE
     Indication: UPPER RESPIRATORY TRACT INFECTION
     Dosage: UNK

REACTIONS (10)
  - Contusion [Unknown]
  - Rash [Unknown]
  - Rash macular [Unknown]
  - Arthralgia [Not Recovered/Not Resolved]
  - Swelling [Unknown]
  - Rash [Recovered/Resolved]
  - Pain [Unknown]
  - Sunburn [Unknown]
  - Diarrhoea [Recovering/Resolving]
  - Lip blister [Recovering/Resolving]
